FAERS Safety Report 8234040-1 (Version None)
Quarter: 2012Q1

REPORT INFORMATION
  Report Type: 
  Country: None (occurrence: None)
  Receive Date: 20120326
  Receipt Date: 20120326
  Transmission Date: 20120608
  Serious: Yes (Other)
  Sender: FDA-Public Use
  Company Number: None

PATIENT
  Sex: Female
  Weight: 73.935 kg

DRUGS (4)
  1. IBUPROFEN [Concomitant]
     Route: 048
  2. LISINOPRIL [Concomitant]
     Route: 048
  3. AUGMENTIN [Suspect]
     Indication: ACUTE SINUSITIS
     Dosage: 875 MG
     Route: 048
     Dates: start: 20111220, end: 20111230
  4. PREDNISONE TAB [Concomitant]
     Dosage: 40 MG DAILY FOR 5 DAYS
     Route: 048
     Dates: start: 20111230, end: 20111230

REACTIONS (5)
  - JAUNDICE [None]
  - FATIGUE [None]
  - DECREASED APPETITE [None]
  - PRURITUS [None]
  - LIVER FUNCTION TEST ABNORMAL [None]
